FAERS Safety Report 17354187 (Version 1)
Quarter: 2020Q1

REPORT INFORMATION
  Report Type: Spontaneous
  Country: CA (occurrence: CA)
  Receive Date: 20200131
  Receipt Date: 20200131
  Transmission Date: 20200409
  Serious: Yes (Death)
  Sender: FDA-Public Use
  Company Number: CA-TEVA-2020-CA-1176915

PATIENT
  Age: 68 Year
  Sex: Male

DRUGS (4)
  1. DOXORUBICIN [Suspect]
     Active Substance: DOXORUBICIN
     Indication: OSTEOSARCOMA METASTATIC
     Route: 065
  2. CISPLATIN. [Suspect]
     Active Substance: CISPLATIN
     Indication: METASTASES TO LUNG
  3. DOXORUBICIN [Suspect]
     Active Substance: DOXORUBICIN
     Indication: METASTASES TO LUNG
  4. CISPLATIN. [Suspect]
     Active Substance: CISPLATIN
     Indication: OSTEOSARCOMA METASTATIC
     Route: 065

REACTIONS (6)
  - Malignant neoplasm progression [Fatal]
  - Metastases to skin [Fatal]
  - Osteosarcoma recurrent [Fatal]
  - Metastases to lung [Fatal]
  - Product use in unapproved indication [Fatal]
  - Therapeutic response decreased [Fatal]
